FAERS Safety Report 13347621 (Version 2)
Quarter: 2017Q1

REPORT INFORMATION
  Report Type: Spontaneous
  Country: US (occurrence: US)
  Receive Date: 20170317
  Receipt Date: 20170329
  Transmission Date: 20170428
  Serious: Yes (Death, Other)
  Sender: FDA-Public Use
  Company Number: US-009507513-1703USA005755

PATIENT
  Sex: Male

DRUGS (4)
  1. PROCHLORPERAZINE MALEATE. [Concomitant]
     Active Substance: PROCHLORPERAZINE MALEATE
  2. INTRON A [Suspect]
     Active Substance: INTERFERON ALFA-2B
     Indication: MALIGNANT MELANOMA
     Dosage: DOSE OR AMOUNT: 10 MU, DAILY VIAL
     Dates: start: 20150727
  3. LATANOPROST. [Concomitant]
     Active Substance: LATANOPROST
  4. TYLENOL [Concomitant]
     Active Substance: ACETAMINOPHEN
     Dosage: UNK, Q8H

REACTIONS (1)
  - Death [Fatal]
